FAERS Safety Report 13338928 (Version 2)
Quarter: 2017Q2

REPORT INFORMATION
  Report Type: Spontaneous
  Country: US (occurrence: US)
  Receive Date: 20170315
  Receipt Date: 20170428
  Transmission Date: 20170830
  Serious: Yes (Death)
  Sender: FDA-Public Use
  Company Number: US-UNITED THERAPEUTICS-UNT-2017-003416

PATIENT
  Sex: Male

DRUGS (1)
  1. ORENITRAM [Suspect]
     Active Substance: TREPROSTINIL
     Indication: PULMONARY ARTERIAL HYPERTENSION
     Dosage: 1 MG, TID
     Route: 048
     Dates: start: 20160728, end: 20170224

REACTIONS (1)
  - Death [Fatal]

NARRATIVE: CASE EVENT DATE: 20170224
